FAERS Safety Report 8932008 (Version 4)
Quarter: 2012Q4

REPORT INFORMATION
  Report Type: 
  Country: US (occurrence: US)
  Receive Date: 20121128
  Receipt Date: 20121219
  Transmission Date: 20130627
  Serious: Yes (Other)
  Sender: FDA-Public Use
  Company Number: US-PFIZER INC-2012292728

PATIENT
  Age: 76 Year
  Sex: Female
  Weight: 90.7 kg

DRUGS (7)
  1. XALATAN [Suspect]
     Indication: GLAUCOMA
     Dosage: one drop in each eye daily at night
     Route: 047
  2. CELEBREX [Suspect]
     Indication: PAIN
     Dosage: 200 mg, daily
  3. CELEBREX [Suspect]
     Indication: OSTEOARTHRITIS
  4. PREMARIN [Suspect]
     Indication: CONNECTIVE TISSUE DISORDER
     Dosage: Unk
     Route: 048
  5. PREMARIN [Suspect]
     Indication: BREAST INFLAMMATION
  6. CALAN SR [Suspect]
     Indication: BLOOD PRESSURE HIGH
     Dosage: 240 mg, daily
     Route: 048
  7. DIOVAN (VALSARTAN) [Concomitant]
     Indication: BLOOD PRESSURE HIGH
     Dosage: 320 mg, daily

REACTIONS (9)
  - Pulmonary oedema [Unknown]
  - Lung infection [Unknown]
  - Arrhythmia [Unknown]
  - Ear infection [Unknown]
  - Hearing impaired [Unknown]
  - Ear pain [Unknown]
  - Feeling abnormal [Unknown]
  - Oedema peripheral [Unknown]
  - Ear congestion [Unknown]
